FAERS Safety Report 10236170 (Version 2)
Quarter: 2014Q2

REPORT INFORMATION
  Report Type: Report from Study
  Country: US (occurrence: US)
  Receive Date: 20140613
  Receipt Date: 20140613
  Transmission Date: 20141212
  Serious: Yes (Other)
  Sender: FDA-Public Use
  Company Number: US-ABBVIE-04P-163-0271499-00

PATIENT
  Age: 31 Year
  Sex: Female

DRUGS (4)
  1. KALETRA SOFT GELATIN CAPSULES [Suspect]
     Indication: HIV INFECTION
     Route: 048
  2. ZERIT [Suspect]
     Indication: HIV INFECTION
     Route: 048
  3. EPIVIR [Suspect]
     Indication: HIV INFECTION
     Route: 048
  4. VIREAD [Suspect]
     Indication: HIV INFECTION
     Route: 048

REACTIONS (1)
  - Abortion spontaneous [Unknown]
